FAERS Safety Report 6875229-3 (Version None)
Quarter: 2010Q3

REPORT INFORMATION
  Report Type: 
  Country: None (occurrence: None)
  Receive Date: 20100727
  Receipt Date: 20100714
  Transmission Date: 20110219
  Serious: Yes (Hospitalization)
  Sender: FDA-Public Use
  Company Number: US-JNJFOC-20100704538

PATIENT
  Age: 10 Year
  Sex: Male
  Weight: 26 kg

DRUGS (9)
  1. REMICADE [Suspect]
     Indication: ARTHRITIS
     Route: 042
  2. METHOTREXATE [Suspect]
     Indication: ARTHRITIS
     Route: 058
  3. METHOTREXATE [Suspect]
     Route: 058
  4. INTRAARTICULAR STEROIDS [Concomitant]
     Route: 050
  5. MELOXICAM [Concomitant]
     Route: 051
  6. FOLIC ACID [Concomitant]
     Route: 048
  7. ZEGERID [Concomitant]
     Route: 048
  8. COMPAZINE [Concomitant]
     Indication: HEADACHE
     Route: 048
  9. MAXALT [Concomitant]
     Indication: HEADACHE
     Route: 048

REACTIONS (11)
  - ARTHRALGIA [None]
  - BACTERAEMIA [None]
  - COUGH [None]
  - FATIGUE [None]
  - HEADACHE [None]
  - INJECTION SITE IRRITATION [None]
  - JOINT SWELLING [None]
  - NEUTROPENIA [None]
  - PYREXIA [None]
  - TOOTH EXTRACTION [None]
  - WHITE BLOOD CELL COUNT DECREASED [None]
